FAERS Safety Report 4367255-3 (Version None)
Quarter: 2004Q2

REPORT INFORMATION
  Report Type: 
  Country: None (occurrence: None)
  Receive Date: 20040524
  Receipt Date: 20040511
  Transmission Date: 20050107
  Serious: No
  Sender: FDA-Public Use
  Company Number: 2004205604US

PATIENT
  Age: 62 Year
  Sex: Male

DRUGS (1)
  1. CELEBREX [Suspect]
     Indication: OSTEOARTHRITIS
     Dosage: 200 MG, BID
     Dates: start: 20000801

REACTIONS (3)
  - AGGRESSION [None]
  - IRRITABILITY [None]
  - LETHARGY [None]
